FAERS Safety Report 6038420-4 (Version None)
Quarter: 2009Q1

REPORT INFORMATION
  Report Type: 
  Country: None (occurrence: None)
  Receive Date: 20090113
  Receipt Date: 20081105
  Transmission Date: 20090719
  Serious: No
  Sender: FDA-Public Use
  Company Number: 2008BM000056

PATIENT
  Age: 31 Year
  Sex: Female
  Weight: 49.8957 kg

DRUGS (4)
  1. KUVAN [Suspect]
     Indication: PHENYLKETONURIA
     Dosage: 1000 MG;QD;PO
     Route: 048
     Dates: start: 20071128
  2. MULTI-VITAMIN [Concomitant]
  3. FISH OIL [Concomitant]
  4. CALCIUM CARBONATE [Concomitant]

REACTIONS (1)
  - ALOPECIA [None]
